FAERS Safety Report 4584938-0 (Version None)
Quarter: 2005Q1

REPORT INFORMATION
  Report Type: 
  Country: None (occurrence: None)
  Receive Date: 20050217
  Receipt Date: 20041116
  Transmission Date: 20050727
  Serious: No
  Sender: FDA-Public Use
  Company Number: US-GLAXOSMITHKLINE-A0534143A

PATIENT
  Age: 27 Year
  Sex: Female

DRUGS (4)
  1. WELLBUTRIN [Suspect]
     Indication: DEPRESSION
     Dosage: 300MG PER DAY
     Route: 048
     Dates: start: 20040915
  2. BIRTH CONTROL PILLS [Concomitant]
  3. NASACORT [Concomitant]
  4. ASTELIN [Concomitant]

REACTIONS (1)
  - ABNORMAL DREAMS [None]
